FAERS Safety Report 5430114-9 (Version None)
Quarter: 2007Q3

REPORT INFORMATION
  Report Type: 
  Country: None (occurrence: None)
  Receive Date: 20070829
  Receipt Date: 20070823
  Transmission Date: 20080115
  Serious: Yes (Other)
  Sender: FDA-Public Use
  Company Number: JP-MERCK-0708USA03263

PATIENT
  Age: 87 Year
  Sex: Female

DRUGS (13)
  1. CIBENOL [Suspect]
     Indication: ATRIAL FIBRILLATION
     Route: 048
     Dates: start: 20070713, end: 20070719
  2. CIBENOL [Suspect]
     Route: 048
     Dates: start: 20070720, end: 20070726
  3. PEPCID [Suspect]
     Indication: PROPHYLAXIS
     Route: 041
     Dates: start: 20070710, end: 20070713
  4. VASOTEC [Concomitant]
     Route: 048
     Dates: start: 20070726
  5. VASOTEC [Concomitant]
     Route: 048
     Dates: end: 20070725
  6. ALDACTONE [Concomitant]
     Indication: HYPERTENSION
     Route: 048
     Dates: end: 20070727
  7. LASIX [Concomitant]
     Indication: HYPERTENSION
     Route: 048
  8. ARTIST [Concomitant]
     Indication: HYPERTENSION
     Route: 048
     Dates: end: 20070724
  9. BEPRIDIL HYDROCHLORIDE [Concomitant]
     Indication: ATRIAL FIBRILLATION
     Route: 048
  10. ALLOPURINOL [Concomitant]
     Indication: HYPERURICAEMIA
     Route: 048
  11. HEPARIN SODIUM [Concomitant]
     Indication: THROMBOSIS PROPHYLAXIS
     Route: 041
     Dates: end: 20070717
  12. WARFARIN [Concomitant]
     Indication: THROMBOSIS PROPHYLAXIS
     Route: 048
  13. LENDORMIN [Concomitant]
     Indication: INSOMNIA
     Route: 048

REACTIONS (1)
  - RENAL IMPAIRMENT [None]
